FAERS Safety Report 13849388 (Version 1)
Quarter: 2017Q3

REPORT INFORMATION
  Report Type: Spontaneous
  Country: US (occurrence: US)
  Receive Date: 20170809
  Receipt Date: 20170809
  Transmission Date: 20171127
  Serious: Yes (Hospitalization)
  Sender: FDA-Public Use
  Company Number: US-ROCHE-1972547

PATIENT
  Sex: Female
  Weight: 64.47 kg

DRUGS (5)
  1. KLONOPIN [Suspect]
     Active Substance: CLONAZEPAM
     Indication: PRODUCT USED FOR UNKNOWN INDICATION
     Route: 065
  2. OCELLA [Concomitant]
     Active Substance: DROSPIRENONE\ETHINYL ESTRADIOL
     Dosage: STOP HORMONE PRODUCTION
     Route: 048
  3. EFFEXOR XR [Suspect]
     Active Substance: VENLAFAXINE HYDROCHLORIDE
     Indication: VESTIBULAR MIGRAINE
     Dosage: TEVA MANUFACTURER
     Route: 048
     Dates: start: 20170508
  4. TOPAMAX [Concomitant]
     Active Substance: TOPIRAMATE
     Indication: VESTIBULAR MIGRAINE
     Route: 048
     Dates: start: 201703
  5. COENZYME Q10 [Concomitant]
     Active Substance: UBIDECARENONE

REACTIONS (3)
  - Drug ineffective [Unknown]
  - Dry mouth [Unknown]
  - Heart rate increased [Unknown]
